FAERS Safety Report 11895250 (Version 1)
Quarter: 2016Q1

REPORT INFORMATION
  Report Type: Spontaneous
  Country: BR (occurrence: BR)
  Receive Date: 20160107
  Receipt Date: 20160107
  Transmission Date: 20160526
  Serious: Yes (Other)
  Sender: FDA-Public Use
  Company Number: PHHY2015BR171119

PATIENT
  Age: 70 Year
  Sex: Female
  Weight: 80 kg

DRUGS (1)
  1. NEOTIAPIM [Suspect]
     Active Substance: QUETIAPINE
     Indication: CENTRAL NERVOUS SYSTEM LESION
     Dosage: 200 MG, QD
     Route: 048

REACTIONS (10)
  - Nosocomial infection [Unknown]
  - Mood altered [Unknown]
  - Off label use [Unknown]
  - Drug administration error [Unknown]
  - Hallucination [Unknown]
  - Dementia [Unknown]
  - Coma [Unknown]
  - Ischaemia [Unknown]
  - Central nervous system lesion [Unknown]
  - Disease progression [Unknown]
